FAERS Safety Report 8086991-9 (Version None)
Quarter: 2012Q1

REPORT INFORMATION
  Report Type: 
  Country: None (occurrence: None)
  Receive Date: 20120128
  Receipt Date: 20110520
  Transmission Date: 20120608
  Serious: No
  Sender: FDA-Public Use
  Company Number: US-ABBOTT-11P-163-0727486-00

PATIENT
  Sex: Male
  Weight: 95.34 kg

DRUGS (4)
  1. HUMIRA [Suspect]
     Route: 058
     Dates: start: 20110415
  2. HUMIRA [Suspect]
     Route: 058
     Dates: start: 20110401, end: 20110401
  3. PREDNISONE TAB [Concomitant]
     Indication: COLITIS ULCERATIVE
  4. HUMIRA [Suspect]
     Indication: COLITIS ULCERATIVE
     Route: 058
     Dates: start: 20110318, end: 20110318

REACTIONS (3)
  - DIZZINESS [None]
  - LOCAL SWELLING [None]
  - RASH [None]
